FAERS Safety Report 4334041-X (Version None)
Quarter: 2004Q2

REPORT INFORMATION
  Report Type: 
  Country: None (occurrence: None)
  Receive Date: 20040402
  Receipt Date: 20040329
  Transmission Date: 20050107
  Serious: Yes (Hospitalization)
  Sender: FDA-Public Use
  Company Number: 2004206127JP

PATIENT
  Age: 71 Year
  Sex: Female

DRUGS (5)
  1. AZULFIDINE EN (SULFASALAZINE) TABLET [Suspect]
     Indication: MUSCULOSKELETAL PAIN
     Dosage: 100MG/DAY, ORAL
     Route: 048
     Dates: start: 20040201, end: 20040324
  2. LOXONIN (LOXOPROFEN SODIUM) [Suspect]
     Dosage: ORAL
     Route: 048
  3. PREDONINE [Concomitant]
  4. MARZULENE S (SODIUM GUALENATE) [Concomitant]
  5. BLOPRESS (CANDESARTAN CILEXETIL) [Concomitant]

REACTIONS (3)
  - CONJUNCTIVAL HYPERAEMIA [None]
  - OCULOMUCOCUTANEOUS SYNDROME [None]
  - RASH GENERALISED [None]
